FAERS Safety Report 5776197-8 (Version None)
Quarter: 2008Q3

REPORT INFORMATION
  Report Type: 
  Country: None (occurrence: None)
  Receive Date: 20080613
  Receipt Date: 20080530
  Transmission Date: 20090109
  Serious: Yes (Other)
  Sender: FDA-Public Use
  Company Number: 2008001269

PATIENT
  Age: 77 Year
  Sex: Female

DRUGS (7)
  1. ERLOTINIB (ERLOTINIB) (TABLET) (ERLOTINIB) [Suspect]
     Indication: LUNG ADENOCARCINOMA
     Dosage: (100 MG,GD),ORAL
     Route: 048
     Dates: start: 20080324
  2. PRAVASTATIN [Suspect]
  3. NAUZELIN (DOMPERIDONE) [Concomitant]
  4. MUCOSTA (REBAMIPIDE) [Suspect]
  5. D-ALFA(ALFACALCIDOL) [Concomitant]
  6. ZOLPIDEM TARTRATE [Concomitant]
  7. AMOBAN (ZOPICLONE) [Suspect]

REACTIONS (6)
  - DIARRHOEA [None]
  - EYE DISORDER [None]
  - HEPATIC FUNCTION ABNORMAL [None]
  - INGROWING NAIL [None]
  - RASH [None]
  - STOMATITIS [None]
